FAERS Safety Report 25312635 (Version 1)
Quarter: 2025Q2

REPORT INFORMATION
  Report Type: Spontaneous
  Country: BR (occurrence: BR)
  Receive Date: 20250514
  Receipt Date: 20250514
  Transmission Date: 20250716
  Serious: Yes (Other)
  Sender: GILEAD
  Company Number: BR-GILEAD-2025-0713196

PATIENT
  Age: 83 Year
  Sex: Female

DRUGS (1)
  1. TRODELVY [Suspect]
     Active Substance: SACITUZUMAB GOVITECAN-HZIY
     Indication: Triple negative breast cancer
     Route: 065
     Dates: start: 202409, end: 202503

REACTIONS (3)
  - Disease progression [Unknown]
  - Alopecia [Unknown]
  - Asthenia [Unknown]
